FAERS Safety Report 20335858 (Version 3)
Quarter: 2022Q1

REPORT INFORMATION
  Report Type: Report from Study
  Country: US (occurrence: US)
  Receive Date: 20220114
  Receipt Date: 20220131
  Transmission Date: 20220423
  Serious: Yes (Hospitalization, Other)
  Sender: FDA-Public Use
  Company Number: US-ABBVIE-21K-163-4152070-00

PATIENT
  Sex: Male

DRUGS (2)
  1. DUOPA [Suspect]
     Active Substance: CARBIDOPA\LEVODOPA
     Indication: Product used for unknown indication
     Route: 050
     Dates: start: 20211007
  2. DUOPA [Suspect]
     Active Substance: CARBIDOPA\LEVODOPA

REACTIONS (14)
  - Suicidal ideation [Recovered/Resolved]
  - Pneumonia aspiration [Unknown]
  - Medical device discomfort [Unknown]
  - Frustration tolerance decreased [Unknown]
  - Therapeutic product effect decreased [Unknown]
  - Device expulsion [Unknown]
  - Device dislocation [Recovered/Resolved]
  - Stoma site pain [Unknown]
  - Stoma site erythema [Unknown]
  - Gait disturbance [Unknown]
  - Freezing phenomenon [Unknown]
  - Stoma site discharge [Unknown]
  - Oxygen therapy [Unknown]
  - On and off phenomenon [Unknown]

NARRATIVE: CASE EVENT DATE: 20210101
